FAERS Safety Report 5967603-4 (Version None)
Quarter: 2008Q4

REPORT INFORMATION
  Report Type: 
  Country: None (occurrence: None)
  Receive Date: 20081126
  Receipt Date: 20081112
  Transmission Date: 20090506
  Serious: Yes (Hospitalization)
  Sender: FDA-Public Use
  Company Number: PHHY2008HU27717

PATIENT
  Age: 69 Year
  Sex: Female

DRUGS (4)
  1. DIOVAN HCT [Suspect]
     Dosage: 160/12.5 MG
  2. ATORVASTATIN CALCIUM [Concomitant]
     Indication: HYPERLIPIDAEMIA
  3. ACTRAPID INSULIN NOVO [Concomitant]
     Indication: DIABETES MELLITUS
  4. NEBIVOLOL [Concomitant]
     Indication: HYPERTENSION

REACTIONS (1)
  - CATHETERISATION CARDIAC [None]
